FAERS Safety Report 7824188-5 (Version None)
Quarter: 2011Q4

REPORT INFORMATION
  Report Type: 
  Country: None (occurrence: None)
  Receive Date: 20111019
  Receipt Date: 20111003
  Transmission Date: 20120403
  Serious: Yes (Hospitalization, Other)
  Sender: FDA-Public Use
  Company Number: HK-BAYER-2011-090767

PATIENT
  Age: 24 Year
  Sex: Female

DRUGS (2)
  1. BETASERON [Suspect]
     Indication: MULTIPLE SCLEROSIS
     Dosage: UNK
     Route: 058
     Dates: start: 20090715
  2. CORTICOSTEROIDS [Suspect]
     Indication: MULTIPLE SCLEROSIS RELAPSE

REACTIONS (13)
  - INJECTION SITE PRURITUS [None]
  - RHINORRHOEA [None]
  - MULTIPLE SCLEROSIS [None]
  - INJECTION SITE PAIN [None]
  - NEURITIS CRANIAL [None]
  - INJECTION SITE SWELLING [None]
  - DIPLOPIA [None]
  - ADVERSE EVENT [None]
  - INJECTION SITE HAEMATOMA [None]
  - INJECTION SITE REACTION [None]
  - BLEPHAROSPASM [None]
  - PRURITUS [None]
  - MULTIPLE SCLEROSIS RELAPSE [None]
